FAERS Safety Report 22047246 (Version 1)
Quarter: 2023Q1

REPORT INFORMATION
  Report Type: Report from Study
  Country: CA (occurrence: CA)
  Receive Date: 20230301
  Receipt Date: 20230301
  Transmission Date: 20230418
  Serious: Yes (Other)
  Sender: FDA-Public Use
  Company Number: CA-ABBVIE-4321361

PATIENT
  Age: 65 Year
  Sex: Female

DRUGS (3)
  1. VENCLEXTA [Suspect]
     Active Substance: VENETOCLAX
     Indication: Acute myeloid leukaemia
     Route: 048
  2. VENCLEXTA [Suspect]
     Active Substance: VENETOCLAX
     Indication: Acute myeloid leukaemia
     Route: 048
  3. VENCLEXTA [Suspect]
     Active Substance: VENETOCLAX
     Indication: Acute myeloid leukaemia
     Route: 048
     Dates: end: 202302

REACTIONS (6)
  - Neutrophil count abnormal [Unknown]
  - Rash [Unknown]
  - Platelet count decreased [Unknown]
  - Erythema [Unknown]
  - Feeling hot [Unknown]
  - Erythema [Unknown]

NARRATIVE: CASE EVENT DATE: 20230221
